FAERS Safety Report 12628735 (Version 1)
Quarter: 2016Q3

REPORT INFORMATION
  Report Type: Spontaneous
  Country: US (occurrence: None)
  Receive Date: 20160805
  Receipt Date: 20160805
  Transmission Date: 20161109
  Serious: No
  Sender: FDA-Public Use
  Company Number: None

PATIENT
  Age: 27 Year
  Sex: Female
  Weight: 85.28 kg

DRUGS (7)
  1. OXYBUTIN [Concomitant]
     Active Substance: OXYBUTYNIN
  2. COPAXONE [Concomitant]
     Active Substance: GLATIRAMER ACETATE
  3. CRANBERRY. [Concomitant]
     Active Substance: CRANBERRY
  4. IMMUNE VITAMINS [Concomitant]
  5. URIBEL [Suspect]
     Active Substance: HYOSCYAMINE SULFATE\METHENAMINE\METHYLENE BLUE\PHENYL SALICYLATE\SODIUM PHOSPHATE, MONOBASIC, MONOHYDRATE
     Indication: URINARY TRACT INFECTION
     Dosage: FOUR TIMES A DAY
     Route: 048
  6. MULTI VITAMINS [Concomitant]
     Active Substance: VITAMINS
  7. WELL BUTRIN [Concomitant]

REACTIONS (2)
  - Vision blurred [None]
  - Dry mouth [None]

NARRATIVE: CASE EVENT DATE: 20160801
